FAERS Safety Report 17157279 (Version 1)
Quarter: 2019Q4

REPORT INFORMATION
  Report Type: Spontaneous
  Country: SE (occurrence: SE)
  Receive Date: 20191216
  Receipt Date: 20191216
  Transmission Date: 20200122
  Serious: Yes (Hospitalization)
  Sender: FDA-Public Use
  Company Number: SE-ACCORD-165079

PATIENT
  Age: 29 Year
  Sex: Female

DRUGS (6)
  1. OLANZAPINE. [Suspect]
     Active Substance: OLANZAPINE
     Dosage: 24X2.5 MG - 60 MG, TAKEN HALF YESTERDAY AT 23 AND THE OTHER HALF AT 17-18
     Route: 048
     Dates: start: 20180818, end: 20180819
  2. QUETIAPINE. [Suspect]
     Active Substance: QUETIAPINE
     Dosage: 24X25MG - 600 MG, TAKEN HALF YESTERDAY AT 23 AND THE OTHER HALF AT 17-18
     Route: 048
     Dates: start: 20180818, end: 20180819
  3. THERALEN [Suspect]
     Active Substance: TRIMEPRAZINE
     Dosage: 25 THERAL, TAKEN HALF YESTERDAY AT 23 AND THE OTHER HALF AT 17-18
     Route: 048
     Dates: start: 20180818, end: 20180819
  4. OXAZEPAM. [Suspect]
     Active Substance: OXAZEPAM
     Dosage: 20X5 MG-  100 MG,TAKEN HALF YESTERDAY AT 23 AND THE OTHER HALF AT 17-18
     Route: 048
     Dates: start: 20180818, end: 20180819
  5. PROPIOMAZINE [Suspect]
     Active Substance: PROPIOMAZINE
     Dosage: 500 MG, TAKEN HALF YESTERDAY AT 23 AND THE OTHER HALF AT 17-18
     Route: 048
     Dates: start: 20180818, end: 20180819
  6. PROMETHAZINE [Suspect]
     Active Substance: PROMETHAZINE HYDROCHLORIDE
     Dosage: 5X5 MG- 25 MGTAKEN HALF YESTERDAY AT 23 AND THE SECOND HALF AT 17-18
     Route: 048
     Dates: start: 20180818, end: 20180819

REACTIONS (2)
  - Intentional self-injury [Unknown]
  - Intentional overdose [Unknown]

NARRATIVE: CASE EVENT DATE: 20180818
